FAERS Safety Report 8579218-2 (Version None)
Quarter: 2012Q3

REPORT INFORMATION
  Report Type: 
  Country: None (occurrence: None)
  Receive Date: 20120726
  Receipt Date: 20120711
  Transmission Date: 20120928
  Serious: Yes (Hospitalization, Other)
  Sender: FDA-Public Use
  Company Number: NCA-N-12-088

PATIENT
  Age: 55 Year
  Sex: Male

DRUGS (1)
  1. LEVOFLOXACIN [Suspect]
     Indication: PNEUMONIA
     Dosage: 500 MG, QD + PARENTERAL
     Route: 051

REACTIONS (7)
  - DELIRIUM [None]
  - CONFUSIONAL STATE [None]
  - IRRITABILITY [None]
  - PSYCHOMOTOR HYPERACTIVITY [None]
  - DISORIENTATION [None]
  - PSYCHOTIC DISORDER [None]
  - LOGORRHOEA [None]
